FAERS Safety Report 7062976-6 (Version None)
Quarter: 2010Q4

REPORT INFORMATION
  Report Type: 
  Country: None (occurrence: None)
  Receive Date: 20101026
  Receipt Date: 20100406
  Transmission Date: 20110411
  Serious: No
  Sender: FDA-Public Use
  Company Number: US-PFIZER INC-2010043653

PATIENT
  Sex: Male
  Weight: 66.213 kg

DRUGS (3)
  1. LIPITOR [Suspect]
     Indication: BLOOD CHOLESTEROL ABNORMAL
     Dosage: 10 MG, 1X/DAY
     Route: 048
     Dates: start: 20100326
  2. LIPITOR [Suspect]
     Indication: BLOOD CHOLESTEROL INCREASED
  3. ACETYLSALICYLIC ACID [Concomitant]
     Dosage: 325 MG, 1X/DAY
     Route: 048

REACTIONS (2)
  - MYALGIA [None]
  - POLLAKIURIA [None]
